FAERS Safety Report 4262925-X (Version None)
Quarter: 2004Q1

REPORT INFORMATION
  Report Type: 
  Country: None (occurrence: None)
  Receive Date: 20040102
  Receipt Date: 20040102
  Transmission Date: 20041129
  Serious: Yes (Disabling)
  Sender: FDA-Public Use
  Company Number: None

PATIENT
  Age: 28 Year
  Sex: Female
  Weight: 68.0396 kg

DRUGS (1)
  1. SEPTOCAINE [Suspect]
     Indication: DENTAL CARIES
     Dosage: INJECTION DENTAL
     Route: 004
     Dates: start: 20031223, end: 20031223

REACTIONS (1)
  - HYPOAESTHESIA ORAL [None]
